FAERS Safety Report 4636066-3 (Version None)
Quarter: 2005Q2

REPORT INFORMATION
  Report Type: 
  Country: None (occurrence: None)
  Receive Date: 20050415
  Receipt Date: 20050406
  Transmission Date: 20051028
  Serious: Yes (Other)
  Sender: FDA-Public Use
  Company Number: FR-BRISTOL-MYERS SQUIBB COMPANY-12927265

PATIENT
  Age: 64 Year
  Sex: Male

DRUGS (1)
  1. ELISOR TABS [Suspect]
     Route: 048

REACTIONS (2)
  - DYSPNOEA [None]
  - INCREASED VISCOSITY OF BRONCHIAL SECRETION [None]
